FAERS Safety Report 22218267 (Version 1)
Quarter: 2023Q2

REPORT INFORMATION
  Report Type: Spontaneous
  Country: JP (occurrence: JP)
  Receive Date: 20230417
  Receipt Date: 20230417
  Transmission Date: 20230721
  Serious: Yes (Other)
  Sender: FDA-Public Use
  Company Number: JP-MYLANLABS-2023M1038372

PATIENT
  Age: 73 Year

DRUGS (3)
  1. LYRICA [Suspect]
     Active Substance: PREGABALIN
     Indication: Pain
     Dosage: 2 TABLETS
     Route: 048
  2. LYRICA [Suspect]
     Active Substance: PREGABALIN
     Dosage: 1 TABLET
     Route: 048
  3. LYRICA [Suspect]
     Active Substance: PREGABALIN
     Dosage: UNK
     Route: 048

REACTIONS (10)
  - Hallucination [Recovered/Resolved]
  - Head discomfort [Unknown]
  - Skin laxity [Unknown]
  - Muscle fatigue [Unknown]
  - Skin discomfort [Unknown]
  - Repetitive speech [Unknown]
  - Abnormal dreams [Unknown]
  - Rash [Unknown]
  - Therapy cessation [Unknown]
  - Inadequate analgesia [Unknown]
